FAERS Safety Report 4740610-5 (Version None)
Quarter: 2005Q3

REPORT INFORMATION
  Report Type: 
  Country: None (occurrence: None)
  Receive Date: 20050729
  Receipt Date: 20050516
  Transmission Date: 20060218
  Serious: Yes (Other)
  Sender: FDA-Public Use
  Company Number: US-2005-007864

PATIENT
  Age: 74 Year
  Sex: Male
  Weight: 81.6 kg

DRUGS (9)
  1. MAGNEVIST [Suspect]
     Indication: ARTERIOGRAM CAROTID
     Dosage: 30 ML, 1 DOSE, INTRAVENOUS
     Route: 042
     Dates: start: 20050516, end: 20050516
  2. BETAPACE [Concomitant]
  3. COMBIVENT /GFR/ (IPRATROPIUM BROMIDE) [Concomitant]
  4. CENTRUM SELECT (VITAMINS NOS,MINERALS NOS) [Concomitant]
  5. IRBESARTAN [Concomitant]
  6. HYDROCHLOROTHIAZIDE [Concomitant]
  7. ZOCOR [Concomitant]
  8. PLAVIX [Concomitant]
  9. ECOTRIN (ACETYLSALICYLIC ACID) [Concomitant]

REACTIONS (7)
  - ANAPHYLACTIC REACTION [None]
  - BLOOD PRESSURE INCREASED [None]
  - FEELING ABNORMAL [None]
  - FLUSHING [None]
  - SNEEZING [None]
  - SWELLING FACE [None]
  - URTICARIA [None]
